FAERS Safety Report 10154089 (Version 1)
Quarter: 2014Q2

REPORT INFORMATION
  Report Type: Spontaneous
  Country: BR (occurrence: BR)
  Receive Date: 20140506
  Receipt Date: 20140506
  Transmission Date: 20141212
  Serious: Yes (Death, Other)
  Sender: FDA-Public Use
  Company Number: BR-ROCHE-1390656

PATIENT
  Sex: Female

DRUGS (2)
  1. BONVIVA [Suspect]
     Indication: OSTEOPOROSIS
     Route: 065
     Dates: start: 1997
  2. SELOZOK [Concomitant]
     Indication: CARDIAC DISORDER

REACTIONS (3)
  - Lung disorder [Fatal]
  - Aortic aneurysm [Unknown]
  - Pulmonary mass [Unknown]
